FAERS Safety Report 5062265-5 (Version None)
Quarter: 2006Q3

REPORT INFORMATION
  Report Type: 
  Country: None (occurrence: None)
  Receive Date: 20060721
  Receipt Date: 20060710
  Transmission Date: 20061208
  Serious: Yes (Hospitalization, Other)
  Sender: FDA-Public Use
  Company Number: 2006079575

PATIENT
  Age: 44 Year
  Sex: Male
  Weight: 88 kg

DRUGS (8)
  1. LIPITOR [Suspect]
     Indication: DRUG USE FOR UNKNOWN INDICATION
     Dosage: 10 MG (10 MG, 1 IN 1 D), ORAL
     Route: 048
     Dates: start: 20030203, end: 20060619
  2. WARFARIN SODIUM [Concomitant]
  3. ALLOPURINOL [Concomitant]
  4. CARVEDILOL [Concomitant]
  5. BLOPRESS (CANDESARTAN CILEXETIL) [Concomitant]
  6. SIGMART (NICORANDIL) [Concomitant]
  7. AMARYL [Concomitant]
  8. ASPIRIN [Concomitant]

REACTIONS (10)
  - ACUTE MYOCARDIAL INFARCTION [None]
  - BLOOD CREATINE PHOSPHOKINASE INCREASED [None]
  - CELLULITIS [None]
  - CHROMATURIA [None]
  - CORONARY ARTERY OCCLUSION [None]
  - INFLAMMATION OF WOUND [None]
  - MECHANICAL COMPLICATION OF IMPLANT [None]
  - MUSCLE ATROPHY [None]
  - NECROTISING FASCIITIS [None]
  - RENAL IMPAIRMENT [None]
